FAERS Safety Report 7588471-3 (Version None)
Quarter: 2011Q3

REPORT INFORMATION
  Report Type: 
  Country: None (occurrence: None)
  Receive Date: 20110705
  Receipt Date: 20110628
  Transmission Date: 20111222
  Serious: Yes (Other)
  Sender: FDA-Public Use
  Company Number: US-PFIZER INC-2011144809

PATIENT
  Sex: Female
  Weight: 64.853 kg

DRUGS (12)
  1. ATIVAN [Suspect]
     Indication: ANXIETY DISORDER
     Dosage: UNK
  2. ZOLOFT [Suspect]
     Indication: PANIC DISORDER
  3. ATIVAN [Suspect]
     Indication: POST-TRAUMATIC STRESS DISORDER
  4. SEROQUEL [Suspect]
     Indication: PANIC DISORDER
  5. ZOLOFT [Suspect]
     Indication: POST-TRAUMATIC STRESS DISORDER
  6. SEROQUEL [Suspect]
     Indication: DEPRESSION
  7. ZOLOFT [Suspect]
     Indication: DEPRESSION
  8. SEROQUEL [Suspect]
     Indication: POST-TRAUMATIC STRESS DISORDER
  9. ATIVAN [Suspect]
     Indication: DEPRESSION
  10. ZOLOFT [Suspect]
     Indication: ANXIETY DISORDER
     Dosage: 200 MG, 1X/DAY
     Route: 048
     Dates: start: 20030101
  11. SEROQUEL [Suspect]
     Indication: ANXIETY DISORDER
     Dosage: 25 MG, 1X/DAY
  12. ATIVAN [Suspect]
     Indication: PANIC DISORDER

REACTIONS (4)
  - WEIGHT INCREASED [None]
  - BLOOD TRIGLYCERIDES INCREASED [None]
  - LOW DENSITY LIPOPROTEIN INCREASED [None]
  - BLOOD CHOLESTEROL INCREASED [None]
